FAERS Safety Report 8453322 (Version 53)
Quarter: 2018Q1

REPORT INFORMATION
  Report Type: Report from Study
  Country: CA (occurrence: CA)
  Receive Date: 20120312
  Receipt Date: 20180321
  Transmission Date: 20180509
  Serious: Yes (Other)
  Sender: FDA-Public Use
  Company Number: PHHY2011CA108764

PATIENT
  Age: 65 Year
  Sex: Male

DRUGS (8)
  1. SANDOSTATIN LAR DEPOT [Suspect]
     Active Substance: OCTREOTIDE ACETATE
     Indication: CARCINOID TUMOUR OF THE SMALL BOWEL
     Dosage: 30 MG, BIW (EVERY TWO WEEK)
     Route: 030
     Dates: start: 20110913
  2. SANDOSTATIN LAR DEPOT [Suspect]
     Active Substance: OCTREOTIDE ACETATE
     Dosage: 60 MG, QMO (EVERY 4 WEEKS)
     Route: 030
     Dates: start: 20140514
  3. PAXIL [Concomitant]
     Active Substance: PAROXETINE HYDROCHLORIDE
     Indication: PRODUCT USED FOR UNKNOWN INDICATION
     Route: 065
  4. SANDOSTATIN LAR DEPOT [Suspect]
     Active Substance: OCTREOTIDE ACETATE
     Dosage: 40 MG, QMO (ONCE A MONTH)
     Route: 030
     Dates: start: 20120512
  5. SANDOSTATIN LAR DEPOT [Suspect]
     Active Substance: OCTREOTIDE ACETATE
     Dosage: 40 MG, BIW (EVERY 2 WEEKS)
     Route: 030
     Dates: start: 20170105
  6. AVODART [Concomitant]
     Active Substance: DUTASTERIDE
     Indication: PRODUCT USED FOR UNKNOWN INDICATION
     Route: 065
  7. SANDOSTATIN LAR DEPOT [Suspect]
     Active Substance: OCTREOTIDE ACETATE
     Dosage: 30 MG, QMO
     Route: 030
  8. SANDOSTATIN LAR DEPOT [Suspect]
     Active Substance: OCTREOTIDE ACETATE
     Dosage: 60 MG, QMO (EVERY 4 WEEKS)
     Route: 030
     Dates: start: 20161125, end: 20161209

REACTIONS (41)
  - Hypercholesterolaemia [Unknown]
  - Rash [Recovered/Resolved]
  - Erythema [Not Recovered/Not Resolved]
  - Dry skin [Recovered/Resolved]
  - Paraesthesia [Unknown]
  - Arthralgia [Unknown]
  - Oedema [Unknown]
  - Pruritus [Unknown]
  - Rash macular [Unknown]
  - Diarrhoea [Recovering/Resolving]
  - Inappropriate schedule of drug administration [Unknown]
  - Hypotension [Unknown]
  - Malignant neoplasm progression [Unknown]
  - Weight decreased [Unknown]
  - Blood urine present [Unknown]
  - Urinary tract infection [Unknown]
  - Dyspnoea [Unknown]
  - Asthenia [Not Recovered/Not Resolved]
  - Second primary malignancy [Unknown]
  - Tremor [Recovered/Resolved]
  - Blood pressure diastolic decreased [Unknown]
  - Dizziness [Not Recovered/Not Resolved]
  - Haemangioma [Unknown]
  - Blood pressure increased [Unknown]
  - Diabetes mellitus [Unknown]
  - Hypoaesthesia [Unknown]
  - Pain [Not Recovered/Not Resolved]
  - Pain in jaw [Unknown]
  - Mass [Unknown]
  - Haematochezia [Unknown]
  - Loss of consciousness [Unknown]
  - Paraesthesia oral [Not Recovered/Not Resolved]
  - Anaemia [Unknown]
  - Back pain [Unknown]
  - Fatigue [Not Recovered/Not Resolved]
  - Basal cell carcinoma [Unknown]
  - Carcinoid tumour of the small bowel [Unknown]
  - Body temperature decreased [Recovering/Resolving]
  - Anxiety [Unknown]
  - Tendonitis [Unknown]
  - Cataract [Unknown]

NARRATIVE: CASE EVENT DATE: 20120131
